FAERS Safety Report 16590908 (Version 1)
Quarter: 2019Q3

REPORT INFORMATION
  Report Type: Spontaneous
  Country: US (occurrence: US)
  Receive Date: 20190604
  Receipt Date: 20190604
  Transmission Date: 20191004
  Serious: Yes (Hospitalization)
  Sender: FDA-Public Use
  Company Number: None

PATIENT
  Age: 70 Year
  Sex: Male
  Weight: 94.7 kg

DRUGS (1)
  1. RITUXIMAB (MOAB C2B8 ANIT CD20, CHIMERIC) 800MG [Suspect]
     Active Substance: RITUXIMAB
     Dates: end: 20170206

REACTIONS (2)
  - Hypotension [None]
  - Sepsis [None]

NARRATIVE: CASE EVENT DATE: 20170208
